FAERS Safety Report 7981836-7 (Version None)
Quarter: 2011Q4

REPORT INFORMATION
  Report Type: 
  Country: None (occurrence: None)
  Receive Date: 20111215
  Receipt Date: 20111207
  Transmission Date: 20120403
  Serious: Yes (Other)
  Sender: FDA-Public Use
  Company Number: JP-ASTELLAS-2011JP009200

PATIENT
  Age: 76 Year
  Sex: Female

DRUGS (6)
  1. ADELAVIN [Concomitant]
     Dosage: 2 ML, UNKNOWN/D
     Route: 041
  2. FLUCONAZOLE [Suspect]
     Dosage: 400 MG, UNKNOWN/D
     Route: 041
     Dates: start: 20111127, end: 20111130
  3. NEOPHAGEN [Concomitant]
     Dosage: 100 MG, UNKNOWN/D
     Route: 041
  4. TATHION [Concomitant]
     Dosage: 400 MG, UNKNOWN/D
     Route: 041
  5. FUNGUARD [Suspect]
     Dosage: 100 MG, UNKNOWN/D
     Route: 041
     Dates: start: 20111201
  6. REMINARON [Concomitant]
     Dosage: 1000 MG, UNKNOWN/D
     Route: 041
     Dates: end: 20111105

REACTIONS (2)
  - RED BLOOD CELL COUNT DECREASED [None]
  - PLATELET COUNT DECREASED [None]
